FAERS Safety Report 23599905 (Version 1)
Quarter: 2024Q1

REPORT INFORMATION
  Report Type: Report from Study
  Country: CA (occurrence: CA)
  Receive Date: 20240306
  Receipt Date: 20240306
  Transmission Date: 20240410
  Serious: Yes (Other)
  Sender: FDA-Public Use
  Company Number: CA-SAMSUNG BIOEPIS-SB-2024-06290

PATIENT
  Age: 44 Year
  Sex: Female

DRUGS (2)
  1. RENFLEXIS [Suspect]
     Active Substance: INFLIXIMAB-ABDA
     Indication: Colitis ulcerative
     Dosage: 800 MG; WEEK 0;
     Route: 042
     Dates: start: 20240109
  2. RENFLEXIS [Suspect]
     Active Substance: INFLIXIMAB-ABDA
     Dosage: 800 MG; WEEK 2-6;
     Route: 042
     Dates: end: 20240220

REACTIONS (4)
  - Mental disorder [Recovering/Resolving]
  - Alopecia [Not Recovered/Not Resolved]
  - Oropharyngeal pain [Recovered/Resolved]
  - Pain [Recovered/Resolved]

NARRATIVE: CASE EVENT DATE: 20240116
